FAERS Safety Report 7434087-9 (Version None)
Quarter: 2011Q2

REPORT INFORMATION
  Report Type: 
  Country: None (occurrence: None)
  Receive Date: 20110425
  Receipt Date: 20110330
  Transmission Date: 20111010
  Serious: No
  Sender: FDA-Public Use
  Company Number: US-B.I. PHARMACEUTICALS,INC./RIDGEFIELD-2011-BP-09720BP

PATIENT
  Sex: Male

DRUGS (8)
  1. PROPECIA [Concomitant]
     Indication: ALOPECIA
     Dosage: 1 MG
  2. DIGOXIN [Concomitant]
     Dosage: 250 MCG
  3. LISINOPRIL [Concomitant]
     Indication: HYPERTENSION
     Dosage: 20 MG
  4. PRADAXA [Concomitant]
     Indication: ATRIAL FIBRILLATION
     Dosage: 300 MG
     Route: 048
     Dates: start: 20110301
  5. ZANTAC 150 [Suspect]
     Indication: GASTROOESOPHAGEAL REFLUX DISEASE
     Dosage: 150 MG
     Route: 048
     Dates: start: 20110301, end: 20110301
  6. ZANTAC 150 [Suspect]
     Indication: THROAT IRRITATION
  7. METOPROLOL [Concomitant]
     Indication: HYPERTENSION
     Dosage: 50 MG
  8. DICYCLOMINE [Concomitant]
     Dosage: 20 MG

REACTIONS (1)
  - DRUG INEFFECTIVE [None]
